FAERS Safety Report 7574068-8 (Version None)
Quarter: 2011Q2

REPORT INFORMATION
  Report Type: 
  Country: None (occurrence: None)
  Receive Date: 20110621
  Receipt Date: 20110613
  Transmission Date: 20111010
  Serious: Yes (Hospitalization)
  Sender: FDA-Public Use
  Company Number: 2009-200919-NL

PATIENT
  Age: 32 Year
  Sex: Female
  Weight: 99 kg

DRUGS (2)
  1. LEXAPRO [Concomitant]
  2. NUVARING [Suspect]
     Indication: HORMONE LEVEL ABNORMAL

REACTIONS (24)
  - OFF LABEL USE [None]
  - DIZZINESS [None]
  - PULMONARY EMBOLISM [None]
  - HYPERTENSION [None]
  - CHILLS [None]
  - INCREASED TENDENCY TO BRUISE [None]
  - WEIGHT INCREASED [None]
  - MIGRAINE [None]
  - BRONCHIAL HYPERREACTIVITY [None]
  - TREMOR [None]
  - INTERNATIONAL NORMALISED RATIO INCREASED [None]
  - POOR QUALITY SLEEP [None]
  - DYSPEPSIA [None]
  - PNEUMONIA [None]
  - WHITE BLOOD CELL COUNT INCREASED [None]
  - ANAEMIA [None]
  - APHASIA [None]
  - ANXIETY [None]
  - LUNG CONSOLIDATION [None]
  - FIBRIN D DIMER INCREASED [None]
  - PROTHROMBIN TIME SHORTENED [None]
  - PROTHROMBIN TIME PROLONGED [None]
  - CHEST PAIN [None]
  - HELICOBACTER TEST POSITIVE [None]
